FAERS Safety Report 5030336-5 (Version None)
Quarter: 2006Q2

REPORT INFORMATION
  Report Type: 
  Country: None (occurrence: None)
  Receive Date: 20060614
  Receipt Date: 20060523
  Transmission Date: 20061013
  Serious: Yes (Other)
  Sender: FDA-Public Use
  Company Number: US200605005296

PATIENT
  Age: 61 Year
  Sex: Female

DRUGS (3)
  1. HUMALOG PEN [Suspect]
     Dates: start: 20060519
  2. HUMALOG PEN [Concomitant]
  3. HUMALOG PEN [Concomitant]

REACTIONS (3)
  - BLINDNESS [None]
  - PHARMACEUTICAL PRODUCT COMPLAINT [None]
  - RENAL IMPAIRMENT [None]
